FAERS Safety Report 4290132-3 (Version None)
Quarter: 2004Q1

REPORT INFORMATION
  Report Type: 
  Country: None (occurrence: None)
  Receive Date: 20040209
  Receipt Date: 20040206
  Transmission Date: 20041129
  Serious: Yes (Other)
  Sender: FDA-Public Use
  Company Number: FRWYE555204FEB04

PATIENT
  Sex: Female

DRUGS (1)
  1. EFFEXOR [Suspect]
     Dosage: 100 TO 150 MG DAILY; ORAL
     Route: 048
     Dates: start: 20010101

REACTIONS (1)
  - DRUG DEPENDENCE [None]
